FAERS Safety Report 9119582 (Version 1)
Quarter: 2013Q1

REPORT INFORMATION
  Report Type: Spontaneous
  Country: IT (occurrence: IT)
  Receive Date: 20130226
  Receipt Date: 20130226
  Transmission Date: 20140127
  Serious: Yes (Hospitalization)
  Sender: FDA-Public Use
  Company Number: IT-NOVOPROD-371432

PATIENT
  Age: 87 Year
  Sex: Male

DRUGS (4)
  1. NOVONORM [Suspect]
     Indication: DIABETES MELLITUS
     Dosage: 6 MG, QD
     Route: 048
     Dates: start: 20121101
  2. LANZOPRAZOL [Concomitant]
     Dosage: 30 MG, QD
     Dates: start: 20121001
  3. ACIDO ACETIL SALICILICO [Concomitant]
     Dosage: 100 MG
     Dates: start: 20121001
  4. NITRO-DUR 10 [Concomitant]
     Indication: CARDIOMYOPATHY
     Dosage: 10 MG, QD
     Route: 062

REACTIONS (1)
  - International normalised ratio increased [Unknown]
